FAERS Safety Report 8546545 (Version 2)
Quarter: 2013Q4

REPORT INFORMATION
  Report Type: Spontaneous
  Country: FR (occurrence: FR)
  Receive Date: 20120504
  Receipt Date: 20131030
  Transmission Date: 20140711
  Serious: Yes (Hospitalization)
  Sender: FDA-Public Use
  Company Number: FR-SANOFI-AVENTIS-2012SA028900

PATIENT
  Age: 1 Day
  Sex: Male
  Weight: 2.89 kg

DRUGS (4)
  1. LARGACTIL [Suspect]
     Indication: EXPOSURE DURING PREGNANCY
     Route: 064
     Dates: start: 20090721, end: 20100406
  2. STILNOX [Suspect]
     Indication: EXPOSURE DURING PREGNANCY
     Route: 064
     Dates: start: 20090721, end: 20100406
  3. METHADONE [Suspect]
     Indication: EXPOSURE DURING PREGNANCY
     Route: 064
     Dates: start: 20090721, end: 20100406
  4. SERESTA [Suspect]
     Indication: EXPOSURE DURING PREGNANCY
     Route: 064
     Dates: start: 20090721, end: 20100406

REACTIONS (6)
  - Agitation neonatal [Unknown]
  - Exposure during pregnancy [Unknown]
  - Drug withdrawal syndrome neonatal [Unknown]
  - Agitation [Unknown]
  - Hypertonia [Unknown]
  - Poor sucking reflex [Unknown]
